FAERS Safety Report 4600525-X (Version None)
Quarter: 2005Q1

REPORT INFORMATION
  Report Type: 
  Country: None (occurrence: None)
  Receive Date: 20050127
  Receipt Date: 20041028
  Transmission Date: 20050727
  Serious: No
  Sender: FDA-Public Use
  Company Number: USA041082557

PATIENT
  Age: 40 Year
  Sex: Female
  Weight: 57 kg

DRUGS (1)
  1. STRATTERA [Suspect]
     Indication: ATTENTION DEFICIT/HYPERACTIVITY DISORDER
     Dosage: 80 MG IN THE MORNING

REACTIONS (7)
  - ANXIETY [None]
  - DRUG INEFFECTIVE [None]
  - FEELING ABNORMAL [None]
  - HOT FLUSH [None]
  - INSOMNIA [None]
  - IRRITABILITY [None]
  - TREMOR [None]
